FAERS Safety Report 9529406 (Version 1)
Quarter: 2013Q3

REPORT INFORMATION
  Report Type: Spontaneous
  Country: IT (occurrence: IT)
  Receive Date: 20130917
  Receipt Date: 20130917
  Transmission Date: 20140515
  Serious: Yes (Hospitalization, Disabling)
  Sender: FDA-Public Use
  Company Number: IT-TEVA-431621ISR

PATIENT
  Age: 52 Year
  Sex: Male

DRUGS (8)
  1. METHOTREXATE [Suspect]
     Indication: RHEUMATOID ARTHRITIS
     Dosage: 2.5 MG 4 TIMES A DAY ONCE A WEEK.
     Route: 065
     Dates: start: 2006
  2. PREDNISONE [Concomitant]
     Route: 065
  3. CALCIUM [Concomitant]
     Route: 065
  4. COLECALCIFEROL [Concomitant]
     Route: 065
  5. FOLIC ACID [Concomitant]
     Dosage: ONCE A WEEK (DAY AFTER METHOTREXATE)
     Route: 065
  6. ROSUVASTATIN [Concomitant]
     Route: 065
  7. PANTOPRAZOLE [Concomitant]
     Route: 065
  8. ALENDRONIC ACID [Concomitant]
     Route: 065

REACTIONS (1)
  - Stomatitis [Recovered/Resolved]
